FAERS Safety Report 13073106 (Version 2)
Quarter: 2017Q1

REPORT INFORMATION
  Report Type: Report from Study
  Country: US (occurrence: US)
  Receive Date: 20161229
  Receipt Date: 20170120
  Transmission Date: 20170428
  Serious: Yes (Hospitalization)
  Sender: FDA-Public Use
  Company Number: US-EISAI MEDICAL RESEARCH-EC-2016-023749

PATIENT
  Age: 51 Year
  Sex: Female
  Weight: 64.7 kg

DRUGS (2)
  1. MIDAZOLAM [Concomitant]
     Active Substance: MIDAZOLAM HYDROCHLORIDE
     Indication: ADENOCARCINOMA PANCREAS
     Route: 048
     Dates: start: 20161128, end: 20161214
  2. LENVATINIB [Suspect]
     Active Substance: LENVATINIB
     Indication: ADENOCARCINOMA PANCREAS
     Route: 048
     Dates: start: 20161201, end: 20161224

REACTIONS (1)
  - Posterior reversible encephalopathy syndrome [Recovering/Resolving]

NARRATIVE: CASE EVENT DATE: 20161227
